FAERS Safety Report 7491929-9 (Version None)
Quarter: 2011Q2

REPORT INFORMATION
  Report Type: 
  Country: None (occurrence: None)
  Receive Date: 20110518
  Receipt Date: 20110518
  Transmission Date: 20111010
  Serious: No
  Sender: FDA-Public Use
  Company Number: None

PATIENT
  Sex: Female
  Weight: 85 kg

DRUGS (1)
  1. VENLAFAXINE [Suspect]
     Indication: DEPRESSION
     Dosage: 150MG BID PO
     Route: 048
     Dates: start: 20110401

REACTIONS (3)
  - DEPRESSION [None]
  - ANXIETY [None]
  - DRUG INEFFECTIVE [None]
